FAERS Safety Report 24231261 (Version 2)
Quarter: 2024Q3

REPORT INFORMATION
  Report Type: Report from Study
  Country: US (occurrence: US)
  Receive Date: 20240821
  Receipt Date: 20240912
  Transmission Date: 20241016
  Serious: Yes (Other)
  Sender: CSL BEHRING
  Company Number: US-BEH-2024177263

PATIENT
  Age: 57 Year
  Sex: Female
  Weight: 63 kg

DRUGS (1)
  1. HIZENTRA [Suspect]
     Active Substance: HUMAN IMMUNOGLOBULIN G
     Indication: Product used for unknown indication
     Route: 065

REACTIONS (4)
  - Surgery [Unknown]
  - Neurological procedural complication [Recovering/Resolving]
  - Sinusitis [Recovering/Resolving]
  - Infection [Recovering/Resolving]
